FAERS Safety Report 7419546-7 (Version None)
Quarter: 2011Q2

REPORT INFORMATION
  Report Type: 
  Country: None (occurrence: None)
  Receive Date: 20110412
  Receipt Date: 20110412
  Transmission Date: 20111010
  Serious: Yes (Hospitalization)
  Sender: FDA-Public Use
  Company Number: None

PATIENT
  Age: 57 Year
  Sex: Male

DRUGS (1)
  1. BACLOFEN [Suspect]
     Indication: PAIN
     Dosage: 10 MG BID PO
     Route: 048
     Dates: start: 20100920, end: 20100924

REACTIONS (2)
  - MENTAL STATUS CHANGES [None]
  - HALLUCINATION [None]
